FAERS Safety Report 13931323 (Version 1)
Quarter: 2017Q3

REPORT INFORMATION
  Report Type: Spontaneous
  Country: MX (occurrence: MX)
  Receive Date: 20170903
  Receipt Date: 20170903
  Transmission Date: 20171127
  Serious: Yes (Hospitalization)
  Sender: FDA-Public Use
  Company Number: MX-MYLANLABS-2017M1054348

PATIENT
  Age: 31 Year
  Sex: Female

DRUGS (4)
  1. CABERGOLINE. [Suspect]
     Active Substance: CABERGOLINE
     Route: 065
  2. CABERGOLINE. [Suspect]
     Active Substance: CABERGOLINE
     Indication: PROLACTIN-PRODUCING PITUITARY TUMOUR
     Dosage: FOR 2 CONSECUTIVE WEEKS; INCREASED TO 0.5 MG PER WEEK
     Route: 065
  3. CABERGOLINE. [Suspect]
     Active Substance: CABERGOLINE
     Route: 065
  4. CABERGOLINE. [Suspect]
     Active Substance: CABERGOLINE
     Indication: SECONDARY HYPOGONADISM
     Dosage: FOR 2 CONSECUTIVE WEEKS; INCREASED TO 0.5 MG PER WEEK
     Route: 065

REACTIONS (3)
  - Emotional distress [Recovered/Resolved]
  - Substance-induced psychotic disorder [Recovered/Resolved]
  - Agitation [Recovered/Resolved]
